FAERS Safety Report 9678341 (Version 1)
Quarter: 2013Q4

REPORT INFORMATION
  Report Type: Spontaneous
  Country: US (occurrence: US)
  Receive Date: 20131108
  Receipt Date: 20131108
  Transmission Date: 20140711
  Serious: No
  Sender: FDA-Public Use
  Company Number: US-BAYER-2013-136602

PATIENT
  Age: 55 Year
  Sex: Female
  Weight: 101 kg

DRUGS (1)
  1. ALEVE CAPLET [Suspect]
     Indication: MUSCULOSKELETAL PAIN
     Dosage: 5 DF, PRN
     Route: 048
     Dates: start: 20131105

REACTIONS (2)
  - Extra dose administered [None]
  - Drug ineffective [None]
